FAERS Safety Report 8064678-6 (Version None)
Quarter: 2012Q1

REPORT INFORMATION
  Report Type: 
  Country: None (occurrence: None)
  Receive Date: 20120123
  Receipt Date: 20120118
  Transmission Date: 20120608
  Serious: Yes (Death, Other)
  Sender: FDA-Public Use
  Company Number: US-ASTRAZENECA-2012SE03651

PATIENT
  Sex: Male

DRUGS (1)
  1. SEROQUEL [Suspect]
     Indication: DEMENTIA
     Route: 048

REACTIONS (3)
  - OFF LABEL USE [None]
  - DEATH [None]
  - CONDITION AGGRAVATED [None]
